FAERS Safety Report 20195113 (Version 1)
Quarter: 2021Q4

REPORT INFORMATION
  Report Type: Spontaneous
  Country: US (occurrence: US)
  Receive Date: 20211216
  Receipt Date: 20211216
  Transmission Date: 20220303
  Serious: Yes (Other)
  Sender: FDA-Public Use
  Company Number: US-REGENERON PHARMACEUTICALS, INC.-2021-48165

PATIENT

DRUGS (2)
  1. EYLEA [Suspect]
     Active Substance: AFLIBERCEPT
     Indication: Neovascular age-related macular degeneration
     Dosage: EVERY 5 WEEK, LEFT EYE
     Route: 031
     Dates: start: 202005
  2. EYLEA [Suspect]
     Active Substance: AFLIBERCEPT
     Indication: Choroidal neovascularisation
     Dosage: EVERY 5 WEEK, LEFT EYE
     Route: 031
     Dates: start: 20210416, end: 20210416

REACTIONS (1)
  - Vitritis [Recovering/Resolving]

NARRATIVE: CASE EVENT DATE: 20210416
